FAERS Safety Report 24583327 (Version 3)
Quarter: 2025Q3

REPORT INFORMATION
  Report Type: Report from Study
  Country: BR (occurrence: BR)
  Receive Date: 20241106
  Receipt Date: 20250723
  Transmission Date: 20251021
  Serious: Yes (Other)
  Sender: TAKEDA
  Company Number: BR-TAKEDA-2024TUS110635

PATIENT
  Sex: Female

DRUGS (1)
  1. VEDOLIZUMAB [Suspect]
     Active Substance: VEDOLIZUMAB
     Indication: Colitis ulcerative

REACTIONS (9)
  - Colitis ulcerative [Recovering/Resolving]
  - Anaemia [Unknown]
  - Vitamin B12 deficiency [Unknown]
  - Vitamin C deficiency [Unknown]
  - Vitamin D deficiency [Unknown]
  - Product availability issue [Unknown]
  - Product dose omission issue [Unknown]
  - Hypersensitivity [Unknown]
  - Fatigue [Unknown]
